FAERS Safety Report 7737365-9 (Version None)
Quarter: 2011Q3

REPORT INFORMATION
  Report Type: 
  Country: None (occurrence: None)
  Receive Date: 20110908
  Receipt Date: 20110901
  Transmission Date: 20111222
  Serious: Yes (Hospitalization)
  Sender: FDA-Public Use
  Company Number: FR-ABBOTT-10P-056-0636029-02

PATIENT
  Age: 43 Year
  Sex: Female
  Weight: 64 kg

DRUGS (3)
  1. HUMIRA [Suspect]
     Route: 058
     Dates: start: 20090731, end: 20090831
  2. HUMIRA [Suspect]
     Indication: CROHN'S DISEASE
     Route: 058
     Dates: start: 20090403, end: 20090630
  3. HUMIRA [Suspect]
     Route: 058
     Dates: start: 20091012, end: 20091012

REACTIONS (1)
  - CROHN'S DISEASE [None]
